FAERS Safety Report 9269788 (Version 1)
Quarter: 2013Q2

REPORT INFORMATION
  Report Type: Spontaneous
  Country: US (occurrence: US)
  Receive Date: 20130503
  Receipt Date: 20130503
  Transmission Date: 20140414
  Serious: No
  Sender: FDA-Public Use
  Company Number: US-BAYER-2013-055387

PATIENT
  Age: 43 Year
  Sex: 0
  Weight: 58.05 kg

DRUGS (1)
  1. ALEVE TABLET [Suspect]
     Indication: BACK PAIN
     Dosage: 2 DF, ONCE
     Route: 048
     Dates: start: 20130424, end: 20130424

REACTIONS (2)
  - Furuncle [Recovered/Resolved]
  - Pruritus [Recovered/Resolved]
